FAERS Safety Report 7600557-3 (Version None)
Quarter: 2011Q3

REPORT INFORMATION
  Report Type: 
  Country: None (occurrence: None)
  Receive Date: 20110711
  Receipt Date: 20110629
  Transmission Date: 20111222
  Serious: Yes (Life-Threatening)
  Sender: FDA-Public Use
  Company Number: FR-ROCHE-786925

PATIENT
  Age: 20 Year
  Sex: Male

DRUGS (2)
  1. VALIUM [Suspect]
     Dosage: DOSE AND FREQUENCY NOT REPORTED
     Route: 048
     Dates: start: 20110508, end: 20110508
  2. LIORESAL [Interacting]
     Indication: ALCOHOL DETOXIFICATION
     Dosage: DOSE AND FREQUENCY NOT REPORTED
     Route: 048
     Dates: start: 20110508, end: 20110508

REACTIONS (3)
  - COMA SCALE ABNORMAL [None]
  - DRUG INTERACTION [None]
  - BRADYCARDIA [None]
